FAERS Safety Report 7141851-2 (Version None)
Quarter: 2010Q4

REPORT INFORMATION
  Report Type: 
  Country: None (occurrence: None)
  Receive Date: 20101207
  Receipt Date: 20101203
  Transmission Date: 20110411
  Serious: Yes (Death, Hospitalization)
  Sender: FDA-Public Use
  Company Number: PHHY2010NL82218

PATIENT
  Sex: Female

DRUGS (1)
  1. ZOMETA [Suspect]
     Indication: BREAST CANCER METASTATIC
     Dosage: 4 MG/5 ML EVERY 4 WEEKS
     Route: 042
     Dates: start: 20100331

REACTIONS (3)
  - BONE NEOPLASM [None]
  - PNEUMONIA [None]
  - SURGERY [None]
